FAERS Safety Report 5663525-7 (Version None)
Quarter: 2008Q1

REPORT INFORMATION
  Report Type: 
  Country: None (occurrence: None)
  Receive Date: 20080310
  Receipt Date: 20080227
  Transmission Date: 20080703
  Serious: Yes (Hospitalization)
  Sender: FDA-Public Use
  Company Number: 2007-01615

PATIENT
  Age: 32 Year
  Sex: Female
  Weight: 46 kg

DRUGS (2)
  1. VELCADE [Suspect]
     Indication: OVARIAN CANCER
     Dosage: 1.94 MG, INTRAVENOUS
     Route: 042
     Dates: start: 20070427, end: 20070521
  2. DOXIL [Suspect]
     Indication: OVARIAN CANCER
     Dosage: 45.00 MG, INTRAVENOUS
     Route: 042
     Dates: start: 20070427, end: 20070521

REACTIONS (6)
  - ANOREXIA [None]
  - ASTHENIA [None]
  - NAUSEA [None]
  - PYREXIA [None]
  - VOMITING [None]
  - WEIGHT DECREASED [None]
